FAERS Safety Report 4546039-7 (Version None)
Quarter: 2005Q1

REPORT INFORMATION
  Report Type: 
  Country: None (occurrence: None)
  Receive Date: 20050103
  Receipt Date: 20041221
  Transmission Date: 20050727
  Serious: Yes (Other)
  Sender: FDA-Public Use
  Company Number: HQWYE643223NOV04

PATIENT
  Age: 46 Year
  Sex: Female
  Weight: 81.72 kg

DRUGS (2)
  1. PREMARIN [Suspect]
     Indication: HORMONE REPLACEMENT THERAPY
     Dosage: 0.625 MG, DAILY, ORAL
     Route: 048
     Dates: start: 19810101, end: 19980101
  2. PROVERA [Suspect]
     Dosage: ORAL
     Route: 048
     Dates: start: 19841101, end: 19980101

REACTIONS (12)
  - ARTHRITIS [None]
  - ASTHENIA [None]
  - BREAST CANCER METASTATIC [None]
  - CARDIAC ARREST [None]
  - CEREBROVASCULAR ACCIDENT [None]
  - MYOCARDIAL INFARCTION [None]
  - PAIN IN EXTREMITY [None]
  - PULMONARY EMBOLISM [None]
  - SKIN ULCER [None]
  - ULCER HAEMORRHAGE [None]
  - UTERINE HAEMORRHAGE [None]
  - VISUAL DISTURBANCE [None]
